FAERS Safety Report 15930519 (Version 1)
Quarter: 2019Q1

REPORT INFORMATION
  Report Type: Spontaneous
  Country: PT (occurrence: PT)
  Receive Date: 20190207
  Receipt Date: 20190207
  Transmission Date: 20190417
  Serious: Yes (Other)
  Sender: FDA-Public Use
  Company Number: PT-009507513-1901PRT011784

PATIENT
  Age: 39 Year
  Sex: Male

DRUGS (4)
  1. HARVONI [Suspect]
     Active Substance: LEDIPASVIR\SOFOSBUVIR
     Indication: CHRONIC HEPATITIS C
     Dosage: UNK
     Route: 065
  2. RIBAVIRIN. [Suspect]
     Active Substance: RIBAVIRIN
     Indication: CHRONIC HEPATITIS C
     Dosage: UNK
     Route: 065
  3. RALTEGRAVIR. [Concomitant]
     Active Substance: RALTEGRAVIR
  4. DARUNAVIR (+) RITONAVIR [Concomitant]
     Active Substance: DARUNAVIR\RITONAVIR

REACTIONS (2)
  - Drug ineffective [Unknown]
  - Hepatitis C [Unknown]
